FAERS Safety Report 16955575 (Version 1)
Quarter: 2019Q4

REPORT INFORMATION
  Report Type: Not Available
  Country: None (occurrence: CN)
  Receive Date: 20191024
  Receipt Date: 20191024
  Transmission Date: 20200122
  Serious: Yes (Other)
  Sender: FDA-Public Use
  Company Number: CN-JIANGSU HENGRUI MEDICINE CO., LTD.-2075996

PATIENT
  Age: 74 Year
  Sex: Male
  Weight: 61 kg

DRUGS (1)
  1. GABAPENTIN. [Suspect]
     Active Substance: GABAPENTIN
     Indication: HERPES ZOSTER
     Route: 048
     Dates: start: 20190926, end: 20191001

REACTIONS (5)
  - Halo vision [Recovering/Resolving]
  - Hallucination [Recovering/Resolving]
  - Disorganised speech [Unknown]
  - Syncope [Unknown]
  - Cognitive disorder [Unknown]

NARRATIVE: CASE EVENT DATE: 20191001
